FAERS Safety Report 24449740 (Version 1)
Quarter: 2024Q4

REPORT INFORMATION
  Report Type: Spontaneous
  Country: US (occurrence: None)
  Receive Date: 20241016
  Receipt Date: 20241016
  Transmission Date: 20250114
  Serious: No
  Sender: Public
  Company Number: None

PATIENT
  Age: 67 Year
  Sex: Female
  Weight: 51.71 kg

DRUGS (1)
  1. ENBREL [Suspect]
     Active Substance: ETANERCEPT
     Indication: Rheumatoid arthritis
     Dosage: OTHER FREQUENCY : ONCEWKLYUSINGTHEAUTOTOUCHDEVICEASDIR;?
     Route: 058
     Dates: start: 202006

REACTIONS (3)
  - Infection [None]
  - Sluggishness [None]
  - Fatigue [None]
